FAERS Safety Report 6828321-3 (Version None)
Quarter: 2010Q3

REPORT INFORMATION
  Report Type: 
  Country: None (occurrence: None)
  Receive Date: 20100709
  Receipt Date: 20070109
  Transmission Date: 20110219
  Serious: No
  Sender: FDA-Public Use
  Company Number: US-PFIZER INC-2007011788

PATIENT
  Sex: Female
  Weight: 83.91 kg

DRUGS (2)
  1. CHANTIX [Suspect]
     Indication: SMOKING CESSATION THERAPY
     Dates: start: 20070115, end: 20070209
  2. TOLOCONIUM METILSULFATE [Concomitant]

REACTIONS (12)
  - ABDOMINAL PAIN UPPER [None]
  - ABNORMAL DREAMS [None]
  - CONSTIPATION [None]
  - HEART RATE INCREASED [None]
  - MIDDLE INSOMNIA [None]
  - NAUSEA [None]
  - PALPITATIONS [None]
  - POOR QUALITY SLEEP [None]
  - SLEEP DISORDER [None]
  - SLUGGISHNESS [None]
  - VOMITING [None]
  - WEIGHT LOSS POOR [None]
